FAERS Safety Report 6010460-0 (Version None)
Quarter: 2008Q4

REPORT INFORMATION
  Report Type: 
  Country: None (occurrence: None)
  Receive Date: 20081217
  Receipt Date: 20081217
  Transmission Date: 20090506
  Serious: Yes (Life-Threatening, Hospitalization)
  Sender: FDA-Public Use
  Company Number: None

PATIENT
  Sex: Female
  Weight: 51.7101 kg

DRUGS (2)
  1. DIGITEK 0.125 MG [Suspect]
     Indication: CARDIAC FAILURE CONGESTIVE
     Dosage: ONE DAILY 047
     Dates: start: 20060101
  2. DIGITEK 0.125 MG [Suspect]
     Indication: CARDIAC FAILURE CONGESTIVE
     Dosage: ONE DAILY 047
     Dates: start: 20080101

REACTIONS (4)
  - CARDIAC FAILURE CONGESTIVE [None]
  - CONDITION AGGRAVATED [None]
  - MEDICATION ERROR [None]
  - THERAPEUTIC AGENT TOXICITY [None]
